FAERS Safety Report 6573677-2 (Version None)
Quarter: 2010Q1

REPORT INFORMATION
  Report Type: 
  Country: None (occurrence: None)
  Receive Date: 20100204
  Receipt Date: 20100204
  Transmission Date: 20100710
  Serious: Yes (Other)
  Sender: FDA-Public Use
  Company Number: None

PATIENT
  Age: 56 Year
  Sex: Female
  Weight: 113.3993 kg

DRUGS (1)
  1. CICLOPIROX [Suspect]
     Indication: SKIN DISORDER
     Dosage: BRUSHED 1 LAYER 1X/DAY TOPICALLY - USED IT 2-3 DAYS
     Route: 061
     Dates: start: 20091112, end: 20091115

REACTIONS (2)
  - RASH PAPULAR [None]
  - SKIN DISCOLOURATION [None]
